FAERS Safety Report 10633422 (Version 2)
Quarter: 2014Q4

REPORT INFORMATION
  Report Type: Spontaneous
  Country: DK (occurrence: None)
  Receive Date: 20141203
  Receipt Date: 20141230
  Transmission Date: 20150529
  Serious: Yes (Hospitalization)
  Sender: FDA-Public Use
  Company Number: DE-H14001-14-01706

PATIENT
  Age: 44 Year
  Sex: Male

DRUGS (6)
  1. CISPLATIN. [Suspect]
     Active Substance: CISPLATIN
     Indication: TESTICULAR GERM CELL CANCER METASTATIC
     Dosage: INCLUDING 5 DOSES
     Route: 042
     Dates: start: 20110929, end: 2011
  2. ETOPOSIDE. [Suspect]
     Active Substance: ETOPOSIDE
     Indication: SEMINOMA
     Dosage: INCLUDING 5 DOSES
     Route: 042
     Dates: start: 20110929, end: 20141126
  3. ETOPOSIDE. [Suspect]
     Active Substance: ETOPOSIDE
     Indication: TESTICULAR GERM CELL CANCER METASTATIC
     Dosage: INCLUDING 5 DOSES
     Route: 042
     Dates: start: 20110929, end: 20141126
  4. BLEOMYCIN [Suspect]
     Active Substance: BLEOMYCIN SULFATE
     Indication: TESTICULAR GERM CELL CANCER METASTATIC
  5. CISPLATIN. [Suspect]
     Active Substance: CISPLATIN
     Indication: SEMINOMA
     Dosage: INCLUDING 5 DOSES
     Route: 042
     Dates: start: 20110929, end: 2011
  6. BLEOMYCIN [Suspect]
     Active Substance: BLEOMYCIN SULFATE
     Indication: SEMINOMA

REACTIONS (3)
  - Cerebrovascular disorder [None]
  - Arterial occlusive disease [None]
  - Cerebral infarction [None]

NARRATIVE: CASE EVENT DATE: 20111020
